FAERS Safety Report 9189333 (Version 2)
Quarter: 2013Q2

REPORT INFORMATION
  Report Type: Report from Study
  Country: GB (occurrence: GB)
  Receive Date: 20130326
  Receipt Date: 20130531
  Transmission Date: 20140414
  Serious: Yes (Hospitalization)
  Sender: FDA-Public Use
  Company Number: PHFR2013GB001894

PATIENT
  Age: 15 Year
  Sex: Female
  Weight: 70.4 kg

DRUGS (2)
  1. ACZ885 [Suspect]
     Indication: CRYOPYRIN ASSOCIATED PERIODIC SYNDROME
     Dosage: 150 MG,
     Route: 058
     Dates: start: 20120224
  2. CETIRIZINE [Concomitant]
     Indication: SEASONAL ALLERGY
     Dosage: 10 MG, UNK
     Route: 048
     Dates: end: 201303

REACTIONS (1)
  - Tonsillitis [Recovered/Resolved]
